FAERS Safety Report 8032395-4 (Version None)
Quarter: 2012Q1

REPORT INFORMATION
  Report Type: 
  Country: None (occurrence: None)
  Receive Date: 20120105
  Receipt Date: 20111220
  Transmission Date: 20120608
  Serious: Yes (Death)
  Sender: FDA-Public Use
  Company Number: 1000026594

PATIENT
  Age: 88 Year
  Sex: Male

DRUGS (7)
  1. ESCITALOPRAM [Suspect]
     Dosage: 5 MG (5 MG, 1 IN 1 D), ORAL
     Route: 048
     Dates: end: 20110428
  2. LASIX [Suspect]
     Dosage: 20 MG (20 MG, 1 IN 1 D), ORAL
     Route: 048
     Dates: start: 20110101
  3. KARDEGIC (ACETYLSALICYLATE LYSINE) (75 MILLIGRAM, POWDER) (ACETYLSALIC [Concomitant]
  4. INEXIUM (ESOMEPRAZOLE MAGNESIUM) (40 MILLIGRAM, TABLETS) (ESOMEPRAZOLE [Concomitant]
  5. COVERSYL (PERINDOPRIL ERBUMINE) (5 MILLIGRAM, TABLETS) (PERINODPRIL ER [Concomitant]
  6. KALEORID (POTASSIUM CHLORIDE) (600 MILLIGRAM, TABLETS) (POTASSIUM CHLO [Concomitant]
  7. LEVOTHYROX (LEVOTHYROXINE SODIUM) (25 MICROGRAM, TABLETS) (LEVOTHYROXI [Concomitant]

REACTIONS (4)
  - CLONUS [None]
  - APHASIA [None]
  - CONVULSION [None]
  - HYPONATRAEMIA [None]
